FAERS Safety Report 25244551 (Version 1)
Quarter: 2025Q2

REPORT INFORMATION
  Report Type: Spontaneous
  Country: US (occurrence: US)
  Receive Date: 20250428
  Receipt Date: 20250428
  Transmission Date: 20250716
  Serious: No
  Sender: ALKEM
  Company Number: US-ALKEM LABORATORIES LIMITED-DE-ALKEM-2025-01374

PATIENT
  Sex: Female

DRUGS (1)
  1. SIROLIMUS [Suspect]
     Active Substance: SIROLIMUS
     Indication: Product used for unknown indication
     Route: 064

REACTIONS (4)
  - Premature baby [Unknown]
  - Speech disorder developmental [Unknown]
  - Foetal exposure during pregnancy [Unknown]
  - Off label use [Unknown]
